FAERS Safety Report 13459833 (Version 1)
Quarter: 2017Q2

REPORT INFORMATION
  Report Type: Spontaneous
  Country: US (occurrence: US)
  Receive Date: 20170420
  Receipt Date: 20170420
  Transmission Date: 20170830
  Serious: No
  Sender: FDA-Public Use
  Company Number: US-TEVA-732925ACC

PATIENT
  Sex: Male

DRUGS (2)
  1. OLANZAPINE TEVA [Suspect]
     Active Substance: OLANZAPINE
     Indication: ANXIETY
  2. OLANZAPINE TEVA [Suspect]
     Active Substance: OLANZAPINE
     Indication: DEPRESSION
     Dosage: DOSE: 2.5 TO 10MG; START DATE: 7-8 YEARS AGO
     Route: 048

REACTIONS (1)
  - Gambling disorder [Unknown]
